FAERS Safety Report 8831309 (Version 2)
Quarter: 2012Q4

REPORT INFORMATION
  Report Type: 
  Country: ES (occurrence: ES)
  Receive Date: 20121008
  Receipt Date: 20121025
  Transmission Date: 20130627
  Serious: Yes (Other)
  Sender: FDA-Public Use
  Company Number: ES-SANOFI-AVENTIS-2012SA071298

PATIENT
  Age: 78 Year
  Sex: Female
  Weight: 76 kg

DRUGS (9)
  1. MULTAQ [Suspect]
     Indication: ATRIAL FIBRILLATION PAROXYSMAL
     Route: 048
     Dates: start: 20110613
  2. LISINOPRIL [Concomitant]
     Route: 048
  3. SINTROM [Concomitant]
     Route: 048
  4. EUTIROX [Concomitant]
     Route: 048
  5. HIDROFEROL [Concomitant]
     Route: 048
  6. LORAZEPAM [Concomitant]
     Route: 048
  7. RISEDRONATE SODIUM [Concomitant]
     Route: 048
  8. CALCIUM CARBONATE [Concomitant]
     Route: 048
  9. OMEPRAZOLE [Concomitant]
     Route: 048

REACTIONS (2)
  - Depressed mood [Unknown]
  - Crying [Recovering/Resolving]
